FAERS Safety Report 10897422 (Version 1)
Quarter: 2015Q1

REPORT INFORMATION
  Report Type: Report from Study
  Country: US (occurrence: US)
  Receive Date: 20150309
  Receipt Date: 20150309
  Transmission Date: 20150721
  Serious: Yes (Other)
  Sender: FDA-Public Use
  Company Number: US-ASTELLAS-2015US007362

PATIENT

DRUGS (1)
  1. ERLOTINIB [Suspect]
     Active Substance: ERLOTINIB
     Indication: NON-SMALL CELL LUNG CANCER
     Dosage: DAILY FOR 28 DAYS
     Route: 048

REACTIONS (5)
  - Hypomagnesaemia [Recovered/Resolved]
  - Lymphopenia [Not Recovered/Not Resolved]
  - Hypocalcaemia [Recovered/Resolved]
  - Dyspepsia [Recovered/Resolved]
  - Hypokalaemia [Recovered/Resolved]

NARRATIVE: CASE EVENT DATE: 20120222
